FAERS Safety Report 14109938 (Version 1)
Quarter: 2017Q4

REPORT INFORMATION
  Report Type: Spontaneous
  Country: US (occurrence: US)
  Receive Date: 20171020
  Receipt Date: 20171020
  Transmission Date: 20180321
  Serious: No
  Sender: FDA-Public Use
  Company Number: US-TEVA-773298ACC

PATIENT
  Age: 23 Year
  Sex: Female
  Weight: 63.56 kg

DRUGS (1)
  1. MICONAZOLE. [Suspect]
     Active Substance: MICONAZOLE
     Dosage: ONCE
     Dates: start: 20170523, end: 20170523

REACTIONS (2)
  - Abdominal pain [Unknown]
  - Muscle spasms [Unknown]

NARRATIVE: CASE EVENT DATE: 20170523
